FAERS Safety Report 13410214 (Version 3)
Quarter: 2017Q3

REPORT INFORMATION
  Report Type: Spontaneous
  Country: US (occurrence: US)
  Receive Date: 20170406
  Receipt Date: 20170712
  Transmission Date: 20171127
  Serious: No
  Sender: FDA-Public Use
  Company Number: US-009507513-1704USA001602

PATIENT
  Age: 11 Year
  Sex: Male
  Weight: 47.17 kg

DRUGS (2)
  1. ASMANEX [Suspect]
     Active Substance: MOMETASONE FUROATE
     Indication: ASTHMA
     Dosage: 110 MICROGRAM, DAILY
     Route: 055
     Dates: start: 20120713, end: 20170401
  2. ASMANEX [Suspect]
     Active Substance: MOMETASONE FUROATE
     Dosage: 110 MICROGRAM, DAILY
     Route: 055
     Dates: start: 201704

REACTIONS (3)
  - Product container issue [Unknown]
  - Drug dose omission [Unknown]
  - Bronchitis [Recovered/Resolved]

NARRATIVE: CASE EVENT DATE: 20170321
